FAERS Safety Report 25503170 (Version 3)
Quarter: 2025Q3

REPORT INFORMATION
  Report Type: Report from Study
  Country: KR (occurrence: KR)
  Receive Date: 20250702
  Receipt Date: 20250716
  Transmission Date: 20251020
  Serious: Yes (Other)
  Sender: AMGEN
  Company Number: KR-AMGEN-KORNI2025048258

PATIENT
  Age: 49 Year
  Sex: Female

DRUGS (3)
  1. TARLATAMAB [Suspect]
     Active Substance: TARLATAMAB
     Indication: Small cell lung cancer
     Route: 040
     Dates: start: 20241030
  2. TARLATAMAB [Suspect]
     Active Substance: TARLATAMAB
     Route: 040
  3. TARLATAMAB [Suspect]
     Active Substance: TARLATAMAB
     Dosage: 10 MILLIGRAM, Q2WK
     Route: 040
     Dates: end: 20241126

REACTIONS (2)
  - Myelodysplastic syndrome [Unknown]
  - Disease progression [Unknown]
